FAERS Safety Report 25903853 (Version 2)
Quarter: 2025Q4

REPORT INFORMATION
  Report Type: Spontaneous
  Country: EU (occurrence: EU)
  Receive Date: 20251010
  Receipt Date: 20251017
  Transmission Date: 20260119
  Serious: Yes (Hospitalization, Other)
  Sender: Haleon PLC
  Company Number: EU-EMA-DD-20251003-7482645-093301

PATIENT
  Age: 74 Year
  Sex: Male

DRUGS (2)
  1. IBUPROFEN [Suspect]
     Active Substance: IBUPROFEN
     Indication: Osteoarthritis
  2. DEXKETOPROFEN\TRAMADOL [Suspect]
     Active Substance: DEXKETOPROFEN\TRAMADOL
     Indication: Osteoarthritis

REACTIONS (4)
  - Acute kidney injury [Unknown]
  - Oliguria [Unknown]
  - Electrolyte imbalance [Unknown]
  - Acid base balance abnormal [Unknown]
